FAERS Safety Report 18143722 (Version 2)
Quarter: 2020Q3

REPORT INFORMATION
  Report Type: Other
  Country: NL (occurrence: NL)
  Receive Date: 20200812
  Receipt Date: 20200825
  Transmission Date: 20201103
  Serious: Yes (Other)
  Sender: FDA-Public Use
  Company Number: NL-ROCHE-2629435

PATIENT
  Age: 86 Year
  Sex: Female

DRUGS (6)
  1. RITUXIMAB. [Suspect]
     Active Substance: RITUXIMAB
     Indication: B-CELL LYMPHOMA
     Dosage: LAST DOSE OF RITUXIMAB PRIOR TO THE EVENT: 03/NOV/2016
     Route: 042
     Dates: start: 20150115
  2. DABIGATRAN [Concomitant]
     Active Substance: DABIGATRAN
     Indication: PRODUCT USED FOR UNKNOWN INDICATION
     Route: 065
  3. BENDAMUSTINE HYDROCHLORIDE. [Suspect]
     Active Substance: BENDAMUSTINE HYDROCHLORIDE
     Indication: B-CELL LYMPHOMA
     Dosage: (6 CYCLES) (DAILY)?LAST DOSE PRIOR TO THE EVENT ONSET: 09/OCT/2014
     Route: 042
     Dates: start: 20140520
  4. LENALIDOMIDE [Suspect]
     Active Substance: LENALIDOMIDE
     Indication: B-CELL LYMPHOMA
     Dosage: DAILY?LAST DOSE PRIOR TO THE EVENT ONSET: 04/NOV/2014
     Route: 065
     Dates: start: 20140523
  5. PANTOPRAZOLE [Concomitant]
     Active Substance: PANTOPRAZOLE
     Indication: PRODUCT USED FOR UNKNOWN INDICATION
     Dosage: 40 MILLIGRAM DAILY;
     Route: 065
  6. DURATEARS Z [Concomitant]
     Indication: PRODUCT USED FOR UNKNOWN INDICATION
     Dosage: 4 TIMES DAILY (BOTH EYES)
     Route: 047

REACTIONS (2)
  - Basal cell carcinoma [Recovered/Resolved]
  - Metastasis [Recovered/Resolved]

NARRATIVE: CASE EVENT DATE: 20200206
